FAERS Safety Report 15661899 (Version 1)
Quarter: 2018Q4

REPORT INFORMATION
  Report Type: Spontaneous
  Country: US (occurrence: US)
  Receive Date: 20181127
  Receipt Date: 20181127
  Transmission Date: 20190205
  Serious: No
  Sender: FDA-Public Use
  Company Number: US-ASTRAZENECA-2018SF44352

PATIENT
  Sex: Female

DRUGS (1)
  1. BYDUREON [Suspect]
     Active Substance: EXENATIDE
     Route: 065

REACTIONS (9)
  - Diarrhoea [Unknown]
  - Headache [Unknown]
  - Blood glucose decreased [Unknown]
  - Pain [Unknown]
  - Feeling abnormal [Unknown]
  - Decreased appetite [Unknown]
  - Dizziness [Unknown]
  - Contusion [Unknown]
  - Mass [Unknown]
